FAERS Safety Report 6709921-8 (Version None)
Quarter: 2010Q2

REPORT INFORMATION
  Report Type: 
  Country: None (occurrence: None)
  Receive Date: 20100504
  Receipt Date: 20100422
  Transmission Date: 20101027
  Serious: No
  Sender: FDA-Public Use
  Company Number: US-JNJFOC-20100406299

PATIENT
  Sex: Female
  Weight: 65.77 kg

DRUGS (5)
  1. FENTANYL CITRATE [Suspect]
     Indication: FIBROMYALGIA
     Route: 062
  2. FENTANYL CITRATE [Suspect]
     Indication: OSTEOARTHRITIS
     Route: 062
  3. FENTANYL CITRATE [Suspect]
     Route: 062
  4. FENTANYL CITRATE [Suspect]
     Route: 062
  5. MANY OTHER UNSPECIFIED MEDICATIONS [Concomitant]
     Route: 065

REACTIONS (1)
  - WRONG TECHNIQUE IN DRUG USAGE PROCESS [None]
